FAERS Safety Report 20584271 (Version 3)
Quarter: 2022Q2

REPORT INFORMATION
  Report Type: Report from Study
  Country: US (occurrence: US)
  Receive Date: 20220311
  Receipt Date: 20220531
  Transmission Date: 20220721
  Serious: No
  Sender: FDA-Public Use
  Company Number: US-KYOWAKIRIN-2022BKK003129

PATIENT

DRUGS (3)
  1. CRYSVITA [Suspect]
     Active Substance: BUROSUMAB-TWZA
     Indication: Hereditary hypophosphataemic rickets
     Dosage: 80 MG, EVERY 14 DAYS
     Route: 058
     Dates: start: 20211008
  2. DRISDOL [Concomitant]
     Active Substance: ERGOCALCIFEROL
     Indication: Hereditary hypophosphataemic rickets
     Dosage: 1250 MG, 1X/2 WEEKS  (FOR 12WEEKS)
     Route: 065
     Dates: start: 20220202
  3. DRISDOL [Concomitant]
     Active Substance: ERGOCALCIFEROL
     Dosage: 50000 IU 1X/2 WEEKS
     Route: 048
     Dates: start: 20220204

REACTIONS (2)
  - Vitamin D decreased [Unknown]
  - Blood phosphorus decreased [Unknown]

NARRATIVE: CASE EVENT DATE: 20220202
